FAERS Safety Report 4296382-4 (Version None)
Quarter: 2004Q1

REPORT INFORMATION
  Report Type: 
  Country: None (occurrence: None)
  Receive Date: 20040213
  Receipt Date: 20040213
  Transmission Date: 20041129
  Serious: Yes (Hospitalization)
  Sender: FDA-Public Use
  Company Number: None

PATIENT
  Sex: Male
  Weight: 95.2554 kg

DRUGS (7)
  1. COUMADIN [Suspect]
     Indication: ANTICOAGULANT THERAPY
     Dosage: 5 MG ALT. WITH 2.5 MG PO [PRIOR TO ADMISSION]
     Route: 048
  2. AVALIDE [Concomitant]
  3. METOPROLOL TARTRATE [Concomitant]
  4. ISOSORBIDE [Concomitant]
  5. PLAVIX [Concomitant]
  6. HYTRIN [Concomitant]
  7. NORVASC [Concomitant]

REACTIONS (3)
  - FAECES DISCOLOURED [None]
  - INTERNATIONAL NORMALISED RATIO INCREASED [None]
  - PROTHROMBIN TIME PROLONGED [None]
